FAERS Safety Report 14119823 (Version 1)
Quarter: 2017Q4

REPORT INFORMATION
  Report Type: Spontaneous
  Country: CN (occurrence: CN)
  Receive Date: 20171024
  Receipt Date: 20171024
  Transmission Date: 20180321
  Serious: Yes (Life-Threatening, Hospitalization, Other)
  Sender: FDA-Public Use
  Company Number: PHHY2017CN154866

PATIENT
  Age: 4 Year
  Sex: Male

DRUGS (3)
  1. LEVETIRACETAM. [Concomitant]
     Active Substance: LEVETIRACETAM
     Indication: ENCEPHALITIS AUTOIMMUNE
     Route: 065
  2. METHYLPREDNISOLONE. [Suspect]
     Active Substance: METHYLPREDNISOLONE
     Indication: ENCEPHALITIS AUTOIMMUNE
     Route: 065
  3. VIDARABINE [Concomitant]
     Active Substance: VIDARABINE
     Indication: ENCEPHALITIS AUTOIMMUNE
     Route: 065

REACTIONS (11)
  - Subacute sclerosing panencephalitis [Recovering/Resolving]
  - Pupillary reflex impaired [Recovering/Resolving]
  - Depressed level of consciousness [Not Recovered/Not Resolved]
  - Extensor plantar response [Recovering/Resolving]
  - Eye movement disorder [Recovering/Resolving]
  - Condition aggravated [Unknown]
  - Bradycardia [Recovering/Resolving]
  - Myotonia [Recovering/Resolving]
  - Pneumonia [Recovering/Resolving]
  - Opisthotonus [Recovering/Resolving]
  - Product use in unapproved indication [Unknown]
